FAERS Safety Report 15769892 (Version 1)
Quarter: 2018Q4

REPORT INFORMATION
  Report Type: Spontaneous
  Country: US (occurrence: US)
  Receive Date: 20181227
  Receipt Date: 20181227
  Transmission Date: 20190205
  Serious: Yes (Death)
  Sender: FDA-Public Use
  Company Number: None

PATIENT
  Age: 47 Year
  Sex: Female

DRUGS (23)
  1. LORAZEPAM. [Concomitant]
     Active Substance: LORAZEPAM
  2. LORAZEPAM. [Concomitant]
     Active Substance: LORAZEPAM
  3. ELIQUIS [Concomitant]
     Active Substance: APIXABAN
  4. OXYCOD APAP [Concomitant]
  5. PILOCARPINE. [Concomitant]
     Active Substance: PILOCARPINE
  6. TRINESSA LO [Concomitant]
     Active Substance: ETHINYL ESTRADIOL\NORGESTIMATE
  7. PREDNISONE. [Concomitant]
     Active Substance: PREDNISONE
  8. ZOLPIDEM [Concomitant]
     Active Substance: ZOLPIDEM\ZOLPIDEM TARTRATE
  9. ATROPINE. [Concomitant]
     Active Substance: ATROPINE
  10. DRONABINOL. [Concomitant]
     Active Substance: DRONABINOL
  11. CEFDINIR. [Concomitant]
     Active Substance: CEFDINIR
  12. WARFARIN [Concomitant]
     Active Substance: WARFARIN
  13. DEXAMETHASONE 0.5MG TAB WEST-WARD [Suspect]
     Active Substance: DEXAMETHASONE
     Indication: RENAL CANCER
     Dosage: ?          OTHER FREQUENCY:4 TIMES DAILY;?
     Route: 048
     Dates: start: 20181018
  14. MORPHINE [Concomitant]
     Active Substance: MORPHINE
  15. FENTANYL. [Concomitant]
     Active Substance: FENTANYL
  16. DEXAMETHASONE 0.5MG TAB WEST-WARD [Suspect]
     Active Substance: DEXAMETHASONE
     Indication: PULMONARY EMBOLISM
     Dosage: ?          OTHER FREQUENCY:4 TIMES DAILY;?
     Route: 048
     Dates: start: 20181018
  17. CEPHALEXIN. [Concomitant]
     Active Substance: CEPHALEXIN
  18. AFINITOR [Concomitant]
     Active Substance: EVEROLIMUS
  19. ONDANSETRON [Concomitant]
     Active Substance: ONDANSETRON
  20. PROCHLORPER [Concomitant]
  21. PHENAZOPYRID [Concomitant]
  22. LIDO PRILOCN [Concomitant]
  23. CYCLOBENZAPR [Concomitant]
     Active Substance: CYCLOBENZAPRINE

REACTIONS (1)
  - Death [None]

NARRATIVE: CASE EVENT DATE: 20181221
